FAERS Safety Report 8447837-X (Version None)
Quarter: 2012Q2

REPORT INFORMATION
  Report Type: 
  Country: None (occurrence: None)
  Receive Date: 20120619
  Receipt Date: 20120611
  Transmission Date: 20120825
  Serious: Yes (Other)
  Sender: FDA-Public Use
  Company Number: US-BAYER-2012-002861

PATIENT
  Age: 27 Year
  Sex: Female
  Weight: 108.84 kg

DRUGS (4)
  1. YAZ [Suspect]
     Dosage: UNK
     Route: 048
     Dates: start: 20000101, end: 20070101
  2. YASMIN [Suspect]
     Dosage: UNK
     Dates: start: 20000101, end: 20070101
  3. WELLBUTRIN [Concomitant]
     Dosage: 150 MG, QD
     Route: 048
  4. SYNTHROID [Concomitant]
     Dosage: 50 ?G, QD
     Route: 048

REACTIONS (3)
  - INJURY [None]
  - PAIN [None]
  - CHOLELITHIASIS [None]
